FAERS Safety Report 16460659 (Version 3)
Quarter: 2019Q3

REPORT INFORMATION
  Report Type: Report from Study
  Country: None (occurrence: IL)
  Receive Date: 20190620
  Receipt Date: 20190710
  Transmission Date: 20191004
  Serious: Yes (Hospitalization, Other)
  Sender: FDA-Public Use
  Company Number: IL-ABBVIE-19S-082-2744906-00

PATIENT
  Sex: Male

DRUGS (4)
  1. DUODOPA [Suspect]
     Active Substance: CARBIDOPA\LEVODOPA
     Dosage: CURRENT MORNING DOSE- 15.5 ML, CONTINUOUS RATE- 1.5 ML/ HOUR, CURRENT EXTRA DOSE- 2.0 ML
     Route: 050
  2. DUODOPA [Suspect]
     Active Substance: CARBIDOPA\LEVODOPA
     Indication: PARKINSON^S DISEASE
     Dosage: CMD- 14 ML, CR- 3.5 ML/ HOUR, CRD- 1.5 ML
     Route: 050
     Dates: start: 20190402, end: 201904
  3. DUODOPA [Suspect]
     Active Substance: CARBIDOPA\LEVODOPA
     Dosage: CMD- 15.5 ML, CR- 4.5 ML/ HOUR, CED- 2.0 ML
     Route: 050
  4. DUODOPA [Suspect]
     Active Substance: CARBIDOPA\LEVODOPA
     Dosage: CMD- 15.5 ML, CR- 4.0 ML/ HOUR, CRD- 2.0 ML(CONTINUOUS DOSE OF 5.0ML/HOUR.)
     Route: 050
     Dates: start: 201904, end: 2019

REACTIONS (10)
  - Nephrolithiasis [Unknown]
  - Musculoskeletal stiffness [Not Recovered/Not Resolved]
  - Gait disturbance [Not Recovered/Not Resolved]
  - Stoma site discharge [Unknown]
  - Therapeutic product effect decreased [Unknown]
  - Urinary tract infection [Not Recovered/Not Resolved]
  - On and off phenomenon [Recovered/Resolved]
  - Malaise [Not Recovered/Not Resolved]
  - Asthenia [Unknown]
  - Constipation [Unknown]

NARRATIVE: CASE EVENT DATE: 2019
